FAERS Safety Report 6998731-2 (Version None)
Quarter: 2010Q3

REPORT INFORMATION
  Report Type: 
  Country: None (occurrence: None)
  Receive Date: 20100920
  Receipt Date: 20091125
  Transmission Date: 20110219
  Serious: No
  Sender: FDA-Public Use
  Company Number: US-ASTRAZENECA-2009SE28848

PATIENT
  Age: 14490 Day
  Sex: Female
  Weight: 49.9 kg

DRUGS (2)
  1. SEROQUEL XR [Suspect]
     Indication: ANXIETY
     Route: 048
     Dates: start: 20091124
  2. KLONOPIN [Concomitant]
     Indication: ANXIETY
     Route: 048

REACTIONS (3)
  - DRY MOUTH [None]
  - NASAL CONGESTION [None]
  - WRONG TECHNIQUE IN DRUG USAGE PROCESS [None]
